FAERS Safety Report 20486937 (Version 1)
Quarter: 2022Q1

REPORT INFORMATION
  Report Type: Spontaneous
  Country: ES (occurrence: ES)
  Receive Date: 20220217
  Receipt Date: 20220217
  Transmission Date: 20220423
  Serious: Yes (Death, Hospitalization)
  Sender: FDA-Public Use
  Company Number: None

PATIENT
  Age: 52 Year
  Sex: Female
  Weight: 66 kg

DRUGS (1)
  1. ERIBULIN [Suspect]
     Active Substance: ERIBULIN
     Indication: Invasive ductal breast carcinoma
     Dosage: DOSE UNKNOWN
     Route: 041
     Dates: start: 20211217, end: 20211227

REACTIONS (6)
  - Oesophagitis [Fatal]
  - Palmar-plantar erythrodysaesthesia syndrome [Fatal]
  - Hepatitis cholestatic [Fatal]
  - Thrombocytopenia [Fatal]
  - Neutropenia [Fatal]
  - Lymphopenia [Fatal]

NARRATIVE: CASE EVENT DATE: 20220101
